FAERS Safety Report 10035577 (Version 1)
Quarter: 2014Q1

REPORT INFORMATION
  Report Type: Spontaneous
  Country: CA (occurrence: CA)
  Receive Date: 20140325
  Receipt Date: 20140325
  Transmission Date: 20141002
  Serious: Yes (Other)
  Sender: FDA-Public Use
  Company Number: PHHY2014CA035656

PATIENT
  Age: 84 Year
  Sex: Female
  Weight: 36.28 kg

DRUGS (7)
  1. ACLASTA [Suspect]
     Dosage: UNK UKN, UNK
     Route: 042
     Dates: start: 201110
  2. VITAMIN D [Concomitant]
     Dosage: 10000 U, QD
  3. VITAMIN D [Concomitant]
     Dosage: 600 U, UNK
     Dates: start: 201203
  4. VITAMIN D [Concomitant]
     Dosage: HALF OF A 10 000 UNITS DOSE
     Dates: start: 201204, end: 201208
  5. CALCIUM [Concomitant]
     Dosage: 500 MG, BID
  6. CALCIUM [Concomitant]
     Dosage: 200 MG, QD
     Dates: start: 201203, end: 201208
  7. CENTRUM [Concomitant]
     Dosage: UNK UKN, UNK
     Dates: start: 201205, end: 201208

REACTIONS (6)
  - Epilepsy [Unknown]
  - Weight decreased [Unknown]
  - Gait disturbance [Unknown]
  - Hypophagia [Unknown]
  - Pain [Unknown]
  - Musculoskeletal stiffness [Unknown]
